FAERS Safety Report 24364249 (Version 5)
Quarter: 2025Q2

REPORT INFORMATION
  Report Type: Report from Study
  Country: US (occurrence: US)
  Receive Date: 20240925
  Receipt Date: 20250409
  Transmission Date: 20250716
  Serious: Yes (Hospitalization, Other)
  Sender: ABBVIE
  Company Number: US-ABBVIE-5931024

PATIENT
  Age: 50 Year
  Sex: Female

DRUGS (2)
  1. HUMIRA [Suspect]
     Active Substance: ADALIMUMAB
     Indication: Rheumatoid arthritis
     Dosage: CITRATE FREE
     Route: 058
     Dates: start: 20240619, end: 20240801
  2. HUMIRA [Suspect]
     Active Substance: ADALIMUMAB
     Dosage: CITRATE FREE
     Route: 058
     Dates: start: 20241016

REACTIONS (16)
  - Loss of consciousness [Recovered/Resolved]
  - Myocardial infarction [Unknown]
  - Acute myocardial infarction [Recovered/Resolved]
  - Back pain [Unknown]
  - Neck mass [Unknown]
  - Hypotension [Unknown]
  - Gastric infection [Unknown]
  - COVID-19 [Recovered/Resolved]
  - Coronary artery occlusion [Unknown]
  - Emotional distress [Not Recovered/Not Resolved]
  - Injection site pain [Recovered/Resolved]
  - Rheumatoid arthritis [Recovering/Resolving]
  - Anxiety [Not Recovered/Not Resolved]
  - Therapeutic product effect incomplete [Unknown]
  - Myocardial infarction [Unknown]
  - Unevaluable event [Unknown]

NARRATIVE: CASE EVENT DATE: 20240101
